FAERS Safety Report 7018743-2 (Version None)
Quarter: 2010Q3

REPORT INFORMATION
  Report Type: 
  Country: None (occurrence: None)
  Receive Date: 20100928
  Receipt Date: 20100917
  Transmission Date: 20110219
  Serious: Yes (Hospitalization)
  Sender: FDA-Public Use
  Company Number: US-MYLANLABS-2010S1017406

PATIENT
  Age: 17 Year
  Sex: Male

DRUGS (3)
  1. AMNESTEEM [Suspect]
     Indication: ACNE
     Route: 048
     Dates: start: 20100701, end: 20100801
  2. AMNESTEEM [Suspect]
     Route: 048
     Dates: start: 20100801, end: 20100801
  3. AMNESTEEM [Suspect]
     Route: 048
     Dates: start: 20100801, end: 20100828

REACTIONS (2)
  - ARTHRALGIA [None]
  - DEHYDRATION [None]
